FAERS Safety Report 4354740-3 (Version None)
Quarter: 2004Q2

REPORT INFORMATION
  Report Type: 
  Country: None (occurrence: None)
  Receive Date: 20040503
  Receipt Date: 20040421
  Transmission Date: 20050107
  Serious: Yes (Hospitalization)
  Sender: FDA-Public Use
  Company Number: US-JNJFOC-20040404942

PATIENT
  Age: 59 Year
  Sex: Male

DRUGS (4)
  1. DURAGESIC [Suspect]
     Indication: PAIN
     Dosage: SEE IMAGE TRANSDERMAL
     Route: 062
     Dates: end: 20040402
  2. DURAGESIC [Suspect]
     Indication: PAIN
     Dosage: SEE IMAGE TRANSDERMAL
     Route: 062
     Dates: start: 20040402, end: 20040410
  3. DURAGESIC [Suspect]
     Indication: PAIN
     Dosage: SEE IMAGE TRANSDERMAL
     Route: 062
     Dates: start: 20040101
  4. DURAGESIC [Suspect]
     Indication: PAIN
     Dosage: SEE IMAGE TRANSDERMAL
     Route: 062
     Dates: start: 20040401

REACTIONS (8)
  - COLD SWEAT [None]
  - DEPRESSED LEVEL OF CONSCIOUSNESS [None]
  - DRUG WITHDRAWAL SYNDROME [None]
  - FEELING COLD [None]
  - HYPERHIDROSIS [None]
  - LETHARGY [None]
  - OVERDOSE [None]
  - SOMNOLENCE [None]
